FAERS Safety Report 7495429-1 (Version None)
Quarter: 2011Q2

REPORT INFORMATION
  Report Type: 
  Country: None (occurrence: None)
  Receive Date: 20110513
  Receipt Date: 20110428
  Transmission Date: 20111010
  Serious: Yes (Hospitalization)
  Sender: FDA-Public Use
  Company Number: DSA_45501_2011

PATIENT
  Age: 41 Year
  Sex: Male

DRUGS (1)
  1. ENALAPRIL MALEATE [Suspect]
     Indication: HYPERTENSION
     Dosage: (5 MG (QD ORAL)
     Route: 048

REACTIONS (3)
  - RESPIRATORY FAILURE [None]
  - UPPER AIRWAY OBSTRUCTION [None]
  - ANGIOEDEMA [None]
